FAERS Safety Report 7408962-5 (Version None)
Quarter: 2011Q2

REPORT INFORMATION
  Report Type: 
  Country: None (occurrence: None)
  Receive Date: 20110407
  Receipt Date: 20110407
  Transmission Date: 20111010
  Serious: No
  Sender: FDA-Public Use
  Company Number: None

PATIENT
  Age: 89 Year
  Sex: Female
  Weight: 79.1 kg

DRUGS (1)
  1. GAMMAGARD [Suspect]
     Dates: start: 20110318, end: 20110318

REACTIONS (4)
  - DIZZINESS [None]
  - HYPERHIDROSIS [None]
  - NAUSEA [None]
  - HYPOTENSION [None]
